FAERS Safety Report 7630077-1 (Version None)
Quarter: 2011Q3

REPORT INFORMATION
  Report Type: 
  Country: None (occurrence: None)
  Receive Date: 20110714
  Receipt Date: 20110706
  Transmission Date: 20111222
  Serious: Yes (Other)
  Sender: FDA-Public Use
  Company Number: 2011SP031439

PATIENT
  Sex: Female

DRUGS (6)
  1. MIRTAZAPINE [Suspect]
     Dosage: 15 MG; QD
     Dates: end: 20110625
  2. LANSOPRAZOLE [Concomitant]
  3. OXYCODONE HCL [Concomitant]
  4. DURAGESIC-100 [Concomitant]
  5. DEXAMETHASONE [Concomitant]
  6. ASPIRIN [Concomitant]

REACTIONS (5)
  - INCONTINENCE [None]
  - BODY TEMPERATURE INCREASED [None]
  - HYPERCALCAEMIA [None]
  - CEREBROVASCULAR ACCIDENT [None]
  - FALL [None]
